FAERS Safety Report 13398808 (Version 1)
Quarter: 2017Q2

REPORT INFORMATION
  Report Type: Spontaneous
  Country: CA (occurrence: CA)
  Receive Date: 20170403
  Receipt Date: 20170403
  Transmission Date: 20170830
  Serious: Yes (Other)
  Sender: FDA-Public Use
  Company Number: CA-TEVA-756147ACC

PATIENT
  Age: 33 Year
  Sex: Female
  Weight: 59 kg

DRUGS (2)
  1. METRONIDAZOLE. [Concomitant]
     Active Substance: METRONIDAZOLE
  2. ACT CIPROFLOXACIN [Suspect]
     Active Substance: CIPROFLOXACIN
     Indication: POUCHITIS
     Dosage: 500 MILLIGRAM DAILY;
     Route: 048

REACTIONS (7)
  - Decreased appetite [Recovered/Resolved]
  - Mood altered [Recovered/Resolved]
  - Dry mouth [Recovered/Resolved]
  - Inflammation [Recovered/Resolved]
  - Mental disorder [Recovered/Resolved]
  - Sleep disorder [Recovered/Resolved]
  - Fungal infection [Recovered/Resolved]
